FAERS Safety Report 4482689-4 (Version None)
Quarter: 2004Q4

REPORT INFORMATION
  Report Type: 
  Country: None (occurrence: None)
  Receive Date: 20041022
  Receipt Date: 20040615
  Transmission Date: 20050328
  Serious: Yes (Hospitalization)
  Sender: FDA-Public Use
  Company Number: PHBS2004JP08014

PATIENT
  Age: 71 Year
  Sex: Female
  Weight: 57 kg

DRUGS (3)
  1. DIOVAN [Suspect]
     Dosage: 80 MG/DAY
     Route: 048
     Dates: start: 20031107, end: 20031226
  2. ADALAT [Suspect]
     Indication: HYPERTENSION
     Dosage: 20 MG/DAY
     Route: 048
     Dates: start: 20031107, end: 20031115
  3. ALDACTONE-A [Concomitant]
     Dosage: 25 MG/DAY
     Route: 048
     Dates: end: 20031221

REACTIONS (2)
  - LOSS OF CONSCIOUSNESS [None]
  - SINUS ARREST [None]
